FAERS Safety Report 11788885 (Version 1)
Quarter: 2015Q4

REPORT INFORMATION
  Report Type: Spontaneous
  Country: None (occurrence: None)
  Receive Date: 20151130
  Receipt Date: 20151130
  Transmission Date: 20160305
  Serious: Yes (Disabling)
  Sender: FDA-Public Use
  Company Number: None

PATIENT
  Age: 69 Year
  Sex: Female

DRUGS (8)
  1. LORSATAN [Concomitant]
  2. LANTUS [Concomitant]
     Active Substance: INSULIN GLARGINE
  3. VITAMIN C [Concomitant]
     Active Substance: ASCORBIC ACID
  4. BYDUREON [Suspect]
     Active Substance: EXENATIDE
     Indication: TYPE 2 DIABETES MELLITUS
     Dosage: PEN  ONCE WEEKLY  INJECTION
     Dates: start: 20151031, end: 20151129
  5. MAGNESEIUM [Concomitant]
  6. BYDUREON [Concomitant]
     Active Substance: EXENATIDE
  7. SOLGAR: MUTL VITAMIN [Concomitant]
  8. METEFORMIM [Concomitant]

REACTIONS (1)
  - Neuropathy peripheral [None]

NARRATIVE: CASE EVENT DATE: 20151014
